FAERS Safety Report 8987681 (Version 2)
Quarter: 2012Q4

REPORT INFORMATION
  Report Type: 
  Country: US (occurrence: US)
  Receive Date: 20121227
  Receipt Date: 20121228
  Transmission Date: 20130627
  Serious: Yes (Hospitalization)
  Sender: FDA-Public Use
  Company Number: US-ABBOTT-12P-163-1027105-00

PATIENT
  Age: 70 Year
  Sex: Male
  Weight: 62 kg

DRUGS (16)
  1. MARINOL [Suspect]
     Indication: DECREASED APPETITE
     Route: 048
     Dates: start: 20121123, end: 20121128
  2. ALL OTHER THERAPEUTIC PRODUCTS [Suspect]
     Indication: PANCREATIC CARCINOMA STAGE IV
     Route: 042
     Dates: start: 20120206
  3. TYLENOL [Concomitant]
     Indication: PRODUCT USED FOR UNKNOWN INDICATION
     Dosage: 1000 mg on 28 Nov 2012; 500 mg every 4 hrs as needed
     Route: 048
     Dates: start: 20121128
  4. BUDESONIDE [Concomitant]
     Indication: PRODUCT USED FOR UNKNOWN INDICATION
     Route: 048
  5. DURAGESIC [Concomitant]
     Indication: PRODUCT USED FOR UNKNOWN INDICATION
     Route: 061
     Dates: end: 20121128
  6. DURAGESIC [Concomitant]
     Dosage: 25 mcg/hr
     Route: 061
     Dates: start: 20121128
  7. LIALDA [Concomitant]
     Indication: PRODUCT USED FOR UNKNOWN INDICATION
     Route: 048
     Dates: start: 20121128
  8. ATIVAN [Concomitant]
     Indication: ANXIETY
     Dosage: Every 6 hours as needed
     Route: 048
  9. MEGACE [Concomitant]
     Indication: PRODUCT USED FOR UNKNOWN INDICATION
     Dosage: 625/5 mg
     Route: 048
     Dates: start: 20121123
  10. REGLAN [Concomitant]
     Indication: PRODUCT USED FOR UNKNOWN INDICATION
     Dosage: Before meals 10 mg AC
     Route: 048
  11. PERCOLONE [Concomitant]
     Indication: BREAKTHROUGH PAIN
     Dosage: 1-2 tablets every 4 hours as needed
     Route: 048
  12. PROTONIX [Concomitant]
     Indication: PRODUCT USED FOR UNKNOWN INDICATION
     Route: 048
  13. MIRALAX [Concomitant]
     Indication: PRODUCT USED FOR UNKNOWN INDICATION
     Dosage: Twice a day as needed
     Route: 048
  14. DELTASONE [Concomitant]
     Indication: PRODUCT USED FOR UNKNOWN INDICATION
     Dosage: For 5 days then reduce to 10 mg for 5 days
     Route: 048
     Dates: start: 20121128
  15. PHENERGAN [Concomitant]
     Indication: PRODUCT USED FOR UNKNOWN INDICATION
     Dosage: Every 4 hours when required
     Route: 048
  16. RAPAFLO [Concomitant]
     Indication: PRODUCT USED FOR UNKNOWN INDICATION
     Route: 048

REACTIONS (9)
  - Mental status changes [Recovering/Resolving]
  - Dehydration [Unknown]
  - Somnolence [Unknown]
  - Pleural effusion [Unknown]
  - Atelectasis [Unknown]
  - Ascites [Unknown]
  - Intestinal dilatation [Unknown]
  - Diarrhoea [Unknown]
  - Malnutrition [Unknown]
